FAERS Safety Report 5644133-0 (Version None)
Quarter: 2008Q1

REPORT INFORMATION
  Report Type: 
  Country: None (occurrence: None)
  Receive Date: 20080227
  Receipt Date: 20080217
  Transmission Date: 20080703
  Serious: Yes (Other)
  Sender: FDA-Public Use
  Company Number: CHPA2008US03016

PATIENT
  Sex: Female

DRUGS (1)
  1. GAS-X EXTSTR CHEW TABS PEPPERMINT CREME (NCH)(SIMETHICONE) CHEWABLE TA [Suspect]
     Indication: FLATULENCE
     Dosage: 14 TABLETS IN ONE HOUR, ORAL
     Route: 048
     Dates: start: 20080217, end: 20080217

REACTIONS (3)
  - ABDOMINAL PAIN UPPER [None]
  - OVERDOSE [None]
  - RECTAL HAEMORRHAGE [None]
